FAERS Safety Report 5001243-9 (Version None)
Quarter: 2006Q1

REPORT INFORMATION
  Report Type: 
  Country: None (occurrence: None)
  Receive Date: 20060315
  Receipt Date: 20051201
  Transmission Date: 20060701
  Serious: Yes (Other)
  Sender: FDA-Public Use
  Company Number: 427403

PATIENT
  Age: 79 Year
  Sex: Female
  Weight: 62.6 kg

DRUGS (3)
  1. BONIVA [Suspect]
     Indication: OSTEITIS DEFORMANS
     Dosage: 150 MG 1 PER MONTH ORAL
     Route: 048
     Dates: start: 20050815, end: 20051015
  2. CENTRUM SILVER (MINERALS NOS/MULTIVITAMIN NOS) [Concomitant]
  3. CALCIUM/VITAMIN D (CALCIUM/VITAMIN D) [Concomitant]

REACTIONS (6)
  - ABDOMINAL DISTENSION [None]
  - APHAGIA [None]
  - GASTROOESOPHAGEAL REFLUX DISEASE [None]
  - HYPERTENSION [None]
  - ILL-DEFINED DISORDER [None]
  - STOMACH DISCOMFORT [None]
